FAERS Safety Report 9787230 (Version 1)
Quarter: 2013Q4

REPORT INFORMATION
  Report Type: Spontaneous
  Country: US (occurrence: US)
  Receive Date: 20131229
  Receipt Date: 20131229
  Transmission Date: 20140711
  Serious: Yes (Hospitalization, Other)
  Sender: FDA-Public Use
  Company Number: US-BRISTOL-MYERS SQUIBB COMPANY-19928068

PATIENT
  Age: 45 Year
  Sex: Female

DRUGS (4)
  1. COUMADIN [Suspect]
     Indication: PULMONARY EMBOLISM
     Route: 065
     Dates: start: 2011
  2. CINRYZE [Suspect]
     Indication: HEREDITARY ANGIOEDEMA
     Route: 042
     Dates: start: 2008
  3. DANAZOL [Suspect]
     Indication: HEREDITARY ANGIOEDEMA
     Route: 065
  4. DILANTIN [Suspect]
     Indication: EPILEPSY
     Route: 065

REACTIONS (6)
  - Nephrolithiasis [Unknown]
  - International normalised ratio increased [Recovered/Resolved]
  - Lip injury [Recovered/Resolved]
  - Lip haemorrhage [Recovered/Resolved]
  - Embolism [Unknown]
  - Incorrect dose administered [Unknown]
